FAERS Safety Report 16009237 (Version 3)
Quarter: 2019Q2

REPORT INFORMATION
  Report Type: Report from Study
  Country: None (occurrence: NL)
  Receive Date: 20190225
  Receipt Date: 20190405
  Transmission Date: 20190711
  Serious: Yes (Death, Life-Threatening, Other)
  Sender: FDA-Public Use
  Company Number: NL-ABBVIE-19S-114-2675635-00

PATIENT
  Sex: Male

DRUGS (1)
  1. DUODOPA [Suspect]
     Active Substance: CARBIDOPA\LEVODOPA
     Indication: PARKINSON^S DISEASE
     Dosage: MD 14.7 ML CD: 4.6 ML ED 2.0 ML NCD 2.3 ML
     Route: 050
     Dates: start: 20171016

REACTIONS (5)
  - Mental disorder [Not Recovered/Not Resolved]
  - Feeding disorder [Not Recovered/Not Resolved]
  - Death [Fatal]
  - Terminal state [Not Recovered/Not Resolved]
  - Incorrect dose administered [Unknown]
